FAERS Safety Report 9494806 (Version 2)
Quarter: 2013Q3

REPORT INFORMATION
  Report Type: Spontaneous
  Country: US (occurrence: US)
  Receive Date: 20130903
  Receipt Date: 20130924
  Transmission Date: 20140515
  Serious: No
  Sender: FDA-Public Use
  Company Number: US-PFIZER INC-2013252315

PATIENT
  Age: 75 Year
  Sex: Female
  Weight: 90.7 kg

DRUGS (10)
  1. LYRICA [Suspect]
     Indication: FIBROMYALGIA
     Dosage: 150 MG, 3X/DAY
     Route: 048
  2. LYRICA [Suspect]
     Indication: DIABETIC NEUROPATHY
  3. HUMULIN N [Concomitant]
     Dosage: UNK
  4. ATENOLOL [Concomitant]
     Dosage: 50 MG, 1X/DAY
  5. LEVOTHYROXINE [Concomitant]
     Dosage: 50 UG, 1X/DAY
  6. LISINOPRIL [Concomitant]
     Dosage: 40 MG, 1X/DAY
  7. BABY ASPIRIN [Concomitant]
     Dosage: UNK, 1X/DAY
  8. OCUVITE [Concomitant]
     Dosage: UNK, 1X/DAY
  9. TIZANIDINE [Concomitant]
     Dosage: 4 MG, 3X/DAY
  10. METANX [Concomitant]
     Dosage: UNK

REACTIONS (6)
  - Intentional drug misuse [Unknown]
  - Muscle spasms [Not Recovered/Not Resolved]
  - Groin pain [Not Recovered/Not Resolved]
  - Dysstasia [Unknown]
  - Somnolence [Unknown]
  - Middle insomnia [Unknown]
